FAERS Safety Report 16115121 (Version 1)
Quarter: 2019Q1

REPORT INFORMATION
  Report Type: Report from Study
  Country: US (occurrence: US)
  Receive Date: 20190325
  Receipt Date: 20190325
  Transmission Date: 20190418
  Serious: Yes (Hospitalization, Other)
  Sender: FDA-Public Use
  Company Number: US-BRISTOL-MYERS SQUIBB COMPANY-BMS-2017-083941

PATIENT
  Sex: Female

DRUGS (1)
  1. DASATINIB. [Suspect]
     Active Substance: DASATINIB
     Indication: CHRONIC MYELOID LEUKAEMIA
     Dosage: 100 MG, QD
     Route: 048
     Dates: start: 20120413

REACTIONS (17)
  - Arthropathy [Unknown]
  - Fatigue [Unknown]
  - Nausea [Unknown]
  - Malignant neoplasm progression [Unknown]
  - Pneumonia [Unknown]
  - Spleen disorder [Unknown]
  - Pyrexia [Unknown]
  - Feeling abnormal [Unknown]
  - Pain in extremity [Unknown]
  - Myalgia [Unknown]
  - Malaise [Unknown]
  - Somnolence [Unknown]
  - Sinusitis [Unknown]
  - Lung disorder [Unknown]
  - Gait disturbance [Unknown]
  - Swelling [Unknown]
  - Metrorrhagia [Unknown]
